FAERS Safety Report 13135809 (Version 3)
Quarter: 2017Q2

REPORT INFORMATION
  Report Type: Report from Study
  Country: US (occurrence: US)
  Receive Date: 20170120
  Receipt Date: 20170504
  Transmission Date: 20170830
  Serious: Yes (Hospitalization)
  Sender: FDA-Public Use
  Company Number: US-ACTELION-A-US2017-148685

PATIENT
  Age: 60 Year
  Sex: Female

DRUGS (1)
  1. OPSUMIT [Suspect]
     Active Substance: MACITENTAN
     Indication: PULMONARY ARTERIAL HYPERTENSION
     Dosage: 10 MG, QD
     Route: 048
     Dates: start: 20150416

REACTIONS (4)
  - Blood creatinine increased [Recovered/Resolved]
  - Purpura [Recovering/Resolving]
  - Vasculitis [Recovering/Resolving]
  - Renal transplant [Recovered/Resolved]

NARRATIVE: CASE EVENT DATE: 20170111
